FAERS Safety Report 11317044 (Version 1)
Quarter: 2015Q3

REPORT INFORMATION
  Report Type: Report from Study
  Country: DE (occurrence: DE)
  Receive Date: 20150728
  Receipt Date: 20150728
  Transmission Date: 20151125
  Serious: Yes (Hospitalization)
  Sender: FDA-Public Use
  Company Number: DE-BAXALTA-2015BLT000548

PATIENT
  Age: 38 Year
  Weight: 60 kg

DRUGS (8)
  1. OCTOCOG ALFA; BAXJECT II [Suspect]
     Active Substance: ANTIHEMOPHILIC FACTOR, HUMAN RECOMBINANT
     Indication: PROPHYLAXIS
     Dosage: 2000 IU, 3X A WEEK
     Route: 065
     Dates: start: 20060107
  2. OCTOCOG ALFA; BAXJECT II [Suspect]
     Active Substance: ANTIHEMOPHILIC FACTOR, HUMAN RECOMBINANT
     Indication: FACTOR VIII DEFICIENCY
     Dosage: UNK
     Route: 065
     Dates: start: 20151104
  3. CIPROFLOXACIN. [Concomitant]
     Active Substance: CIPROFLOXACIN
     Indication: INFECTION
     Dosage: 500 MG, 1X A DAY
     Route: 048
     Dates: start: 20150601, end: 20150606
  4. TENOFOVIR [Concomitant]
     Active Substance: TENOFOVIR
     Indication: ANTIVIRAL TREATMENT
     Dosage: 245 MG, 1X A DAY
     Route: 048
     Dates: start: 20110101
  5. CYCLOCAPRON [Concomitant]
     Indication: HAEMORRHAGE PROPHYLAXIS
     Dosage: 500 MG, AS NEEDED ON DEMAND UP TO 3X 2 TABLETS
     Route: 048
     Dates: start: 20130411
  6. TENOFOVIR [Concomitant]
     Active Substance: TENOFOVIR
     Indication: HEPATITIS B
  7. OMEPRAZOL [Concomitant]
     Active Substance: OMEPRAZOLE
     Indication: PROPHYLAXIS AGAINST GASTROINTESTINAL ULCER
     Dosage: 40 MG, 1X A DAY
     Route: 048
     Dates: start: 20130418
  8. ARCOXIA [Concomitant]
     Active Substance: ETORICOXIB
     Indication: ANALGESIC INTERVENTION SUPPORTIVE THERAPY
     Dosage: 60 MG, AS NEEDED, 1 ON DEMAND
     Route: 048

REACTIONS (2)
  - Neoplasm recurrence [Not Recovered/Not Resolved]
  - Neuroendocrine tumour [Not Recovered/Not Resolved]

NARRATIVE: CASE EVENT DATE: 20141104
